FAERS Safety Report 20050220 (Version 1)
Quarter: 2021Q4

REPORT INFORMATION
  Report Type: Spontaneous
  Country: HR (occurrence: HR)
  Receive Date: 20211109
  Receipt Date: 20211109
  Transmission Date: 20220303
  Serious: Yes (Other)
  Sender: FDA-Public Use
  Company Number: HR-BoehringerIngelheim-2021-BI-135856

PATIENT
  Age: 69 Year
  Sex: Female

DRUGS (2)
  1. GILOTRIF [Suspect]
     Active Substance: AFATINIB
     Indication: Lung adenocarcinoma
     Dates: start: 202007
  2. GILOTRIF [Suspect]
     Active Substance: AFATINIB
     Indication: EGFR gene mutation

REACTIONS (4)
  - Disease progression [Unknown]
  - Dyspnoea [Unknown]
  - Dermatitis acneiform [Unknown]
  - Paronychia [Unknown]

NARRATIVE: CASE EVENT DATE: 20210501
